FAERS Safety Report 7217368-3 (Version None)
Quarter: 2010Q4

REPORT INFORMATION
  Report Type: 
  Country: None (occurrence: None)
  Receive Date: 20101230
  Receipt Date: 20101222
  Transmission Date: 20110411
  Serious: Yes (Other)
  Sender: FDA-Public Use
  Company Number: 2010SP065859

PATIENT
  Age: 36 Year
  Sex: Female
  Weight: 101.6057 kg

DRUGS (1)
  1. IMPLANON [Suspect]
     Indication: PRODUCT USED FOR UNKNOWN INDICATION
     Dates: start: 20100721, end: 20101222

REACTIONS (1)
  - HYSTERECTOMY [None]
